FAERS Safety Report 7272698-4 (Version None)
Quarter: 2011Q1

REPORT INFORMATION
  Report Type: 
  Country: None (occurrence: None)
  Receive Date: 20110203
  Receipt Date: 20110131
  Transmission Date: 20110831
  Serious: Yes (Other)
  Sender: FDA-Public Use
  Company Number: US-ABBOTT-11P-163-0702037-00

PATIENT
  Sex: Female
  Weight: 37.682 kg

DRUGS (10)
  1. HUMIRA [Suspect]
     Indication: CROHN'S DISEASE
  2. FOLIC ACID [Concomitant]
     Indication: PRODUCT USED FOR UNKNOWN INDICATION
  3. MARINOL [Concomitant]
     Indication: NAUSEA
  4. METHOTREXATE [Concomitant]
     Indication: PRODUCT USED FOR UNKNOWN INDICATION
  5. CIPRO [Concomitant]
     Indication: CROHN'S DISEASE
  6. NEXIUM [Concomitant]
     Indication: GASTROOESOPHAGEAL REFLUX DISEASE
  7. KLONOPIN [Concomitant]
     Indication: CONVULSION
  8. FENTANYL [Concomitant]
     Indication: PAIN
  9. ZOFRAN [Concomitant]
     Indication: NAUSEA
  10. FLAGYL [Concomitant]
     Indication: CROHN'S DISEASE

REACTIONS (15)
  - BLOOD IRON INCREASED [None]
  - INJECTION SITE PAIN [None]
  - FATIGUE [None]
  - ARTHRITIS [None]
  - NAUSEA [None]
  - DIARRHOEA [None]
  - DEVICE MALFUNCTION [None]
  - INFLUENZA LIKE ILLNESS [None]
  - PAIN [None]
  - HAEMOCHROMATOSIS [None]
  - BLOOD PRESSURE INCREASED [None]
  - FEELING COLD [None]
  - HEPATIC ENZYME INCREASED [None]
  - DRUG DOSE OMISSION [None]
  - HEPATITIS [None]
